FAERS Safety Report 7406769-6 (Version None)
Quarter: 2011Q2

REPORT INFORMATION
  Report Type: 
  Country: None (occurrence: None)
  Receive Date: 20110411
  Receipt Date: 20110328
  Transmission Date: 20111010
  Serious: Yes (Other)
  Sender: FDA-Public Use
  Company Number: GXKR2011DK01212

PATIENT
  Sex: Male
  Weight: 85 kg

DRUGS (3)
  1. PLENDIL [Concomitant]
     Indication: HYPERTENSION
     Dates: start: 19940101
  2. LAMOTRIGINE [Suspect]
     Indication: EPILEPSY
     Dosage: 700 MG/DAY
     Dates: start: 20050101, end: 20100101
  3. LAMOTRIGINE [Suspect]
     Indication: EPILEPSY
     Dosage: STYRKE: 100 MG
     Dates: start: 20050101, end: 20100101

REACTIONS (3)
  - SOMNOLENCE [None]
  - DIARRHOEA [None]
  - CHRONIC OBSTRUCTIVE PULMONARY DISEASE [None]
